FAERS Safety Report 9215223 (Version 2)
Quarter: 2013Q2

REPORT INFORMATION
  Report Type: Spontaneous
  Country: JP (occurrence: JP)
  Receive Date: 20130405
  Receipt Date: 20130501
  Transmission Date: 20140414
  Serious: Yes (Disabling)
  Sender: FDA-Public Use
  Company Number: JP-ASTRAZENECA-2013SE20878

PATIENT
  Age: 60 Year
  Sex: Female

DRUGS (2)
  1. ARIMIDEX [Suspect]
     Indication: BREAST CANCER
     Route: 048
  2. FURTULON [Suspect]
     Indication: BREAST CANCER
     Route: 048
     Dates: start: 201303, end: 201303

REACTIONS (2)
  - Hepatic cirrhosis [Not Recovered/Not Resolved]
  - Malignant neoplasm progression [None]
